FAERS Safety Report 23975770 (Version 1)
Quarter: 2024Q2

REPORT INFORMATION
  Report Type: Spontaneous
  Country: RO (occurrence: RO)
  Receive Date: 20240614
  Receipt Date: 20240614
  Transmission Date: 20240716
  Serious: Yes (Other)
  Sender: FDA-Public Use
  Company Number: RO-AMGEN-ROUSP2024112735

PATIENT
  Age: 65 Year
  Sex: Male

DRUGS (1)
  1. VECTIBIX [Suspect]
     Active Substance: PANITUMUMAB
     Indication: Product used for unknown indication
     Dosage: 6 MILLIGRAM/KILOGRAM, Q2WK
     Route: 065

REACTIONS (3)
  - Neutropenia [Unknown]
  - Rash [Recovered/Resolved]
  - Onychoclasis [Recovered/Resolved]
